FAERS Safety Report 18762907 (Version 1)
Quarter: 2021Q1

REPORT INFORMATION
  Report Type: Report from Study
  Country: US (occurrence: US)
  Receive Date: 20210120
  Receipt Date: 20210120
  Transmission Date: 20210419
  Serious: Yes (Other)
  Sender: FDA-Public Use
  Company Number: US-JNJFOC-20210126209

PATIENT

DRUGS (4)
  1. LEVAQUIN [Suspect]
     Active Substance: LEVOFLOXACIN
     Indication: PULMONARY SARCOIDOSIS
     Route: 065
  2. ETHAMBUTOL [Suspect]
     Active Substance: ETHAMBUTOL HYDROCHLORIDE
     Indication: PULMONARY SARCOIDOSIS
     Dosage: 1200 MG FOR }50KG; 800 MG FOR {50KG
     Route: 065
  3. AZITHROMYCIN ANHYDROUS. [Suspect]
     Active Substance: AZITHROMYCIN ANHYDROUS
     Indication: PULMONARY SARCOIDOSIS
     Route: 065
  4. RIFABUTIN. [Suspect]
     Active Substance: RIFABUTIN
     Indication: PULMONARY SARCOIDOSIS
     Route: 065

REACTIONS (5)
  - Leukopenia [Unknown]
  - Product use in unapproved indication [Unknown]
  - Hypotension [Unknown]
  - Pneumonia [Unknown]
  - Off label use [Unknown]
